FAERS Safety Report 9026645 (Version 4)
Quarter: 2013Q4

REPORT INFORMATION
  Report Type: Spontaneous
  Country: JP (occurrence: JP)
  Receive Date: 20130123
  Receipt Date: 20131119
  Transmission Date: 20140711
  Serious: Yes (Life-Threatening, Hospitalization)
  Sender: FDA-Public Use
  Company Number: JP-BAYER-2013-008957

PATIENT
  Age: 48 Year
  Sex: Female
  Weight: 65 kg

DRUGS (3)
  1. YAZ [Suspect]
     Indication: DYSMENORRHOEA
     Dosage: 1 DF, QD
     Route: 048
     Dates: start: 20120730, end: 20130106
  2. DOGMATYL [Concomitant]
     Dosage: UNK
  3. RIZE [Concomitant]
     Route: 048

REACTIONS (8)
  - Pulmonary embolism [Recovered/Resolved]
  - Cardio-respiratory arrest [Recovered/Resolved]
  - Venous thrombosis limb [Recovered/Resolved]
  - Feeling abnormal [Recovered/Resolved]
  - Memory impairment [Recovered/Resolved]
  - Shock [Recovered/Resolved]
  - Weight increased [None]
  - Headache [None]
